FAERS Safety Report 4626553-6 (Version None)
Quarter: 2005Q1

REPORT INFORMATION
  Report Type: 
  Country: None (occurrence: None)
  Receive Date: 20050330
  Receipt Date: 20050311
  Transmission Date: 20050727
  Serious: Yes (Disabling, Other)
  Sender: FDA-Public Use
  Company Number: USA050393038

PATIENT
  Age: 84 Year
  Sex: Male
  Weight: 82 kg

DRUGS (3)
  1. HUMALOG [Suspect]
     Indication: BLOOD GLUCOSE INCREASED
     Dosage: 10 U/3 DAY
     Dates: start: 20030101
  2. HUMULIN 70/30 [Suspect]
     Indication: BLOOD GLUCOSE INCREASED
  3. LANTUS [Concomitant]

REACTIONS (7)
  - BLINDNESS UNILATERAL [None]
  - BLOOD GLUCOSE DECREASED [None]
  - CATARACT [None]
  - DIABETES MELLITUS INADEQUATE CONTROL [None]
  - DISORIENTATION [None]
  - EYE HAEMORRHAGE [None]
  - MEDICATION ERROR [None]
